FAERS Safety Report 8503600 (Version 3)
Quarter: 2012Q4

REPORT INFORMATION
  Report Type: 
  Country: US (occurrence: US)
  Receive Date: 20120411
  Receipt Date: 20120830
  Transmission Date: 20130627
  Serious: Yes (Hospitalization, Other)
  Sender: FDA-Public Use
  Company Number: US-BAYER-2012-033453

PATIENT
  Age: 30 Year
  Sex: Female
  Weight: 81.63 kg

DRUGS (9)
  1. YASMIN [Suspect]
     Indication: CONTRACEPTION
     Dosage: UNK
     Dates: start: 200705, end: 200709
  2. PROTONIX [Concomitant]
     Dosage: 20 mg, UNK
     Dates: start: 20070611
  3. CLINDAMYCIN HYDROCHLORIDE [Concomitant]
     Dosage: UNK
     Dates: start: 20070702
  4. HYDROCODONE W/APAP [Concomitant]
     Dosage: UNK
     Dates: start: 20070702
  5. NEXIUM [Concomitant]
     Dosage: 40 mg every other day
     Dates: start: 20070916
  6. METHADONE [Concomitant]
     Dosage: 140 mg, daily
     Dates: start: 20070916
  7. DILANTIN [Concomitant]
     Dosage: 300 mg, UNK
     Dates: start: 20070916
  8. LORAZEPAM [Concomitant]
     Dosage: 2 mg, UNK
     Dates: start: 20070916
  9. PLAVIX [Concomitant]

REACTIONS (10)
  - Cerebrovascular accident [None]
  - Deep vein thrombosis [None]
  - Injury [None]
  - Pain [None]
  - General physical health deterioration [None]
  - Anxiety [None]
  - Emotional distress [None]
  - General physical health deterioration [None]
  - Mental disorder [None]
  - Memory impairment [None]
